FAERS Safety Report 23162335 (Version 1)
Quarter: 2023Q4

REPORT INFORMATION
  Report Type: Spontaneous
  Country: GB (occurrence: GB)
  Receive Date: 20231109
  Receipt Date: 20231109
  Transmission Date: 20240110
  Serious: Yes (Life-Threatening)
  Sender: FDA-Public Use
  Company Number: None

PATIENT
  Age: 40 Year

DRUGS (1)
  1. WEGOVY [Suspect]
     Active Substance: SEMAGLUTIDE
     Indication: Weight control
     Dosage: 0.25 UNIT NOT REPORTED
     Dates: end: 20231010

REACTIONS (6)
  - Blood insulin abnormal [Not Recovered/Not Resolved]
  - Medication error [Unknown]
  - Angina pectoris [Unknown]
  - Limb discomfort [Unknown]
  - Hypertension [Unknown]
  - Blood glucose decreased [Unknown]

NARRATIVE: CASE EVENT DATE: 20231010
